FAERS Safety Report 10252702 (Version 1)
Quarter: 2014Q2

REPORT INFORMATION
  Report Type: Spontaneous
  Country: US (occurrence: US)
  Receive Date: 20140623
  Receipt Date: 20140623
  Transmission Date: 20141212
  Serious: Yes (Hospitalization)
  Sender: FDA-Public Use
  Company Number: US-ROCHE-1001197

PATIENT
  Sex: Female

DRUGS (6)
  1. FILGRASTIM [Suspect]
     Indication: NEUTROPENIA
     Dosage: UNIT MUG
     Route: 065
  2. DARBEPOETIN ALFA [Suspect]
     Indication: ANAEMIA
     Dosage: UNIT MUG
     Route: 065
  3. DARBEPOETIN ALFA [Suspect]
     Dosage: MCG
     Route: 065
     Dates: start: 20110920
  4. TELAPREVIR [Suspect]
     Indication: HEPATITIS C
     Route: 065
  5. PEG-INTERFERON ALFA 2A [Suspect]
     Indication: HEPATITIS C
     Route: 065
  6. RIBAVIRIN [Concomitant]
     Indication: HEPATITIS C
     Route: 065

REACTIONS (3)
  - Blood urine present [Not Recovered/Not Resolved]
  - Epistaxis [Not Recovered/Not Resolved]
  - Haemoptysis [Not Recovered/Not Resolved]
